FAERS Safety Report 6708485-2 (Version None)
Quarter: 2010Q2

REPORT INFORMATION
  Report Type: 
  Country: None (occurrence: None)
  Receive Date: 20100503
  Receipt Date: 20090323
  Transmission Date: 20101027
  Serious: No
  Sender: FDA-Public Use
  Company Number: US-ASTRAZENECA-2009UW07298

PATIENT
  Age: 66 Year
  Sex: Female
  Weight: 77.1 kg

DRUGS (2)
  1. NEXIUM [Suspect]
     Route: 048
  2. CIMITIDINE [Concomitant]

REACTIONS (2)
  - DYSPHONIA [None]
  - INCREASED UPPER AIRWAY SECRETION [None]
